FAERS Safety Report 5816684-7 (Version None)
Quarter: 2008Q3

REPORT INFORMATION
  Report Type: 
  Country: None (occurrence: None)
  Receive Date: 20080721
  Receipt Date: 20070911
  Transmission Date: 20090109
  Serious: No
  Sender: FDA-Public Use
  Company Number: US-BRISTOL-MYERS SQUIBB COMPANY-13906763

PATIENT
  Age: 34 Year
  Sex: Female

DRUGS (6)
  1. ESTRACE [Suspect]
     Dates: start: 20070101
  2. GONAL-F [Suspect]
     Indication: INFERTILITY
     Dates: start: 20070101
  3. SEROPHENE [Suspect]
     Indication: ANOVULATORY CYCLE
     Dates: start: 20070101
  4. PROGESTERONE [Suspect]
     Route: 048
     Dates: start: 20070101
  5. OVIDREL [Suspect]
     Indication: INFERTILITY FEMALE
     Dates: start: 20070101
  6. LOVENOX [Concomitant]

REACTIONS (5)
  - ABDOMINAL PAIN [None]
  - BLOOD FOLLICLE STIMULATING HORMONE INCREASED [None]
  - HUNGER [None]
  - NIPPLE PAIN [None]
  - THIRST [None]
